FAERS Safety Report 6148150-6 (Version None)
Quarter: 2009Q2

REPORT INFORMATION
  Report Type: 
  Country: None (occurrence: None)
  Receive Date: 20090402
  Receipt Date: 20081209
  Transmission Date: 20091009
  Serious: No
  Sender: FDA-Public Use
  Company Number: 1000004711

PATIENT
  Age: 52 Year
  Sex: Male

DRUGS (3)
  1. BYSTOLIC [Suspect]
     Dosage: ORAL
     Route: 048
  2. CELEBREX [Suspect]
     Indication: PAIN
  3. BENICAR HCT (OLMESARTAN MEDOXOMIL, HYDROCHLOROTHIAZINE (OLMESARTAN MED [Concomitant]

REACTIONS (2)
  - DRUG INTERACTION [None]
  - TENDONITIS [None]
